FAERS Safety Report 18251987 (Version 1)
Quarter: 2020Q3

REPORT INFORMATION
  Report Type: Spontaneous
  Country: US (occurrence: US)
  Receive Date: 20200909
  Receipt Date: 20200909
  Transmission Date: 20201103
  Serious: Yes (Other)
  Sender: FDA-Public Use
  Company Number: None

PATIENT
  Age: 67 Year
  Sex: Female
  Weight: 72 kg

DRUGS (14)
  1. VITAMIN D3 [Concomitant]
     Active Substance: CHOLECALCIFEROL
  2. PROTONIX [Concomitant]
     Active Substance: PANTOPRAZOLE SODIUM
  3. PERCOCET [Concomitant]
     Active Substance: ACETAMINOPHEN\OXYCODONE HYDROCHLORIDE
  4. MOTRIN [Concomitant]
     Active Substance: IBUPROFEN
  5. NITROGLYCERINE [Concomitant]
     Active Substance: NITROGLYCERIN
  6. CELEBREX [Concomitant]
     Active Substance: CELECOXIB
  7. PRALUENT [Suspect]
     Active Substance: ALIROCUMAB
     Indication: BLOOD CHOLESTEROL INCREASED
     Dosage: ?          QUANTITY:2 INJECTION(S);OTHER FREQUENCY:EVERY TWO WEEKS;?
     Route: 030
     Dates: start: 20200404, end: 20200601
  8. JANUVIA [Concomitant]
     Active Substance: SITAGLIPTIN PHOSPHATE
  9. TRAZODONE [Concomitant]
     Active Substance: TRAZODONE HYDROCHLORIDE
  10. VITAMIN D [Concomitant]
     Active Substance: VITAMIN D NOS
  11. TOPROL XL [Concomitant]
     Active Substance: METOPROLOL SUCCINATE
  12. ATIVAN [Concomitant]
     Active Substance: LORAZEPAM
  13. ASPIRIN. [Concomitant]
     Active Substance: ASPIRIN
  14. COZAAR [Concomitant]
     Active Substance: LOSARTAN POTASSIUM

REACTIONS (11)
  - Pain in extremity [None]
  - Injection site swelling [None]
  - Injection site bruising [None]
  - Feeling hot [None]
  - Insomnia [None]
  - Gait inability [None]
  - Injection site pain [None]
  - Arthralgia [None]
  - Erythema [None]
  - Back pain [None]
  - Mass [None]

NARRATIVE: CASE EVENT DATE: 20200628
